FAERS Safety Report 7054094-8 (Version None)
Quarter: 2010Q4

REPORT INFORMATION
  Report Type: 
  Country: None (occurrence: None)
  Receive Date: 20101014
  Receipt Date: 20100929
  Transmission Date: 20110411
  Serious: Yes (Death)
  Sender: FDA-Public Use
  Company Number: GB-DEXPHARM-20101528

PATIENT
  Age: 57 Year
  Sex: Male

DRUGS (8)
  1. CHLORHEXIDINE ACTIVE SUBSTANCES: CHLORHEXIDINE [Suspect]
     Route: 003
     Dates: start: 20100615, end: 20100615
  2. ADALAT [Concomitant]
  3. ASPIRIN [Concomitant]
  4. ATORVASTATIN [Concomitant]
  5. BISOPROLOL FUMARATE [Concomitant]
  6. COAPROVEL (HYDROCHLOROTHIAZIDE AND IRBESARTAN) [Concomitant]
  7. LANSOPRAZOLE [Concomitant]
  8. WARFARIN [Concomitant]

REACTIONS (2)
  - ANAPHYLACTIC SHOCK [None]
  - BLOOD IMMUNOGLOBULIN E INCREASED [None]
